FAERS Safety Report 6184100-4 (Version None)
Quarter: 2009Q2

REPORT INFORMATION
  Report Type: 
  Country: None (occurrence: None)
  Receive Date: 20090508
  Receipt Date: 20090430
  Transmission Date: 20091009
  Serious: Yes (Disabling)
  Sender: FDA-Public Use
  Company Number: PHHY2009ES16466

PATIENT
  Age: 71 Year
  Sex: Female

DRUGS (5)
  1. ZOMETA [Suspect]
     Indication: METASTASES TO BONE
     Dosage: 4 MG
     Route: 042
     Dates: start: 20040401
  2. ARIMIDEX [Concomitant]
  3. TRAMADOL HCL [Concomitant]
  4. ESPIDIFEN [Concomitant]
  5. ZANTAC [Concomitant]

REACTIONS (1)
  - OSTEONECROSIS [None]
